FAERS Safety Report 6564436-5 (Version None)
Quarter: 2010Q1

REPORT INFORMATION
  Report Type: 
  Country: None (occurrence: None)
  Receive Date: 20100201
  Receipt Date: 20100120
  Transmission Date: 20100710
  Serious: Yes (Other)
  Sender: FDA-Public Use
  Company Number: DZ-BRISTOL-MYERS SQUIBB COMPANY-14952352

PATIENT
  Age: 62 Year
  Sex: Male

DRUGS (1)
  1. GLUCOVANCE [Suspect]
     Indication: DIABETES MELLITUS
     Dosage: 1 DF= 2.5MG/500MG
     Route: 048
     Dates: start: 20091224

REACTIONS (2)
  - HEPATITIS [None]
  - RASH [None]
